FAERS Safety Report 5239127-3 (Version None)
Quarter: 2007Q1

REPORT INFORMATION
  Report Type: 
  Country: None (occurrence: None)
  Receive Date: 20061208
  Receipt Date: 20050603
  Transmission Date: 20070707
  Serious: Yes (Other)
  Sender: FDA-Public Use
  Company Number: 2005UW07190

PATIENT
  Age: 58 Year
  Sex: Female
  Weight: 70.306 kg

DRUGS (5)
  1. CRESTOR [Suspect]
     Dosage: 10 MG PO
     Route: 048
     Dates: start: 20040501, end: 20050501
  2. EVISTA [Concomitant]
  3. CALCIUM [Concomitant]
  4. BENADRYL [Concomitant]
  5. NEXIUM [Concomitant]

REACTIONS (3)
  - BREAST PAIN [None]
  - BREAST SWELLING [None]
  - BREAST TENDERNESS [None]
